FAERS Safety Report 19248408 (Version 3)
Quarter: 2021Q2

REPORT INFORMATION
  Report Type: Report from Study
  Country: US (occurrence: US)
  Receive Date: 20210512
  Receipt Date: 20210610
  Transmission Date: 20210717
  Serious: Yes (Hospitalization)
  Sender: FDA-Public Use
  Company Number: US-CELGENEUS-USA-20210502313

PATIENT
  Age: 81 Year
  Sex: Female
  Weight: 44 kg

DRUGS (22)
  1. AZACITIDINE. [Suspect]
     Active Substance: AZACITIDINE
     Dosage: 105.75 MG X 1 X 1 DAYS
     Route: 058
     Dates: start: 20210423, end: 20210423
  2. ALBUTEROL (PROVENTIL HFA; VENTOLIN HFA) [Concomitant]
     Indication: DYSPNOEA
     Dosage: 2?4 PUFF X PRN
     Route: 055
     Dates: start: 20210312, end: 20210426
  3. CC?90009 [Suspect]
     Active Substance: INVESTIGATIONAL PRODUCT
     Dosage: 3 MG X 1 X 1 DAYS
     Route: 042
     Dates: start: 20210422, end: 20210422
  4. ROCALTROL [Concomitant]
     Active Substance: CALCITRIOL
     Indication: MINERAL SUPPLEMENTATION
     Dosage: 0.25 MG X 1 X 1 DAYS
     Route: 048
     Dates: start: 20210312, end: 20210425
  5. CASPOFUNGIN [Concomitant]
     Active Substance: CASPOFUNGIN
     Indication: PROPHYLAXIS
     Dosage: 50 MG X 1 X 1 DAYS
     Route: 042
     Dates: start: 20210304, end: 20210426
  6. CHOLECALCIFEROL (VITAMIN D) [Concomitant]
     Indication: PROPHYLAXIS
     Dosage: 1000 IU X 1 X 1 DAYS
     Route: 048
     Dates: start: 20210312
  7. VENETOCLAX. [Suspect]
     Active Substance: VENETOCLAX
     Indication: ACUTE MYELOID LEUKAEMIA
     Dosage: 100 MG X 1 X 1 DAYS
     Route: 048
     Dates: start: 20210312, end: 20210312
  8. VENETOCLAX. [Suspect]
     Active Substance: VENETOCLAX
     Dosage: 50 MG X 1 X 1 DAYS
     Route: 048
     Dates: start: 20210427, end: 20210508
  9. CETIRIZINE (ZYRTEX) [Concomitant]
     Indication: PROPHYLAXIS
     Dosage: 10 MG X PRN
     Route: 048
     Dates: start: 20210312, end: 20210422
  10. LEVAQUIN [Concomitant]
     Active Substance: LEVOFLOXACIN
     Indication: PROPHYLAXIS
     Dosage: 500 MG X 1 X 1 DAYS
     Route: 048
     Dates: start: 20210308
  11. CC?90009 [Suspect]
     Active Substance: INVESTIGATIONAL PRODUCT
     Indication: ACUTE MYELOID LEUKAEMIA
     Dosage: 3 MG X 1 X 1 DAYS
     Route: 042
     Dates: start: 20210315, end: 20210315
  12. POTASSIUM PHOSPHATE [Concomitant]
     Active Substance: POTASSIUM PHOSPHATE
     Indication: PROPHYLAXIS
     Dosage: 30 MMOL X PRN
     Route: 042
     Dates: start: 20210322, end: 20210425
  13. AZACITIDINE. [Suspect]
     Active Substance: AZACITIDINE
     Indication: ACUTE MYELOID LEUKAEMIA
     Dosage: 111 MG X 1 X 1 DAYS
     Route: 058
     Dates: start: 20210312, end: 20210312
  14. POTASSIUM/SODIUM PHOSPHATES (PHOS?NAK) [Concomitant]
     Indication: PROPHYLAXIS
     Dosage: 250 MG X ONCE
     Route: 048
     Dates: start: 20210503, end: 20210503
  15. CALCIUM CARBONATE (OSCAL) [Concomitant]
     Indication: MINERAL SUPPLEMENTATION
     Dosage: 1250 MG X 3 X 1 DAYS
     Route: 048
     Dates: start: 20210312
  16. DECADRON [Concomitant]
     Active Substance: DEXAMETHASONE
     Indication: STEROID THERAPY
     Dosage: 10 MG X 1 X 1 DAYS
     Route: 048
     Dates: start: 20210315, end: 20210422
  17. LIDOCAINE?PRILOCAINE (EMLA) 2.5% CREAM [Concomitant]
     Indication: CATHETER SITE PAIN
     Dosage: 25 G X 1 X 1 DAYS
     Route: 061
     Dates: start: 20210104
  18. VORICONAZOLE (VFEND) [Concomitant]
     Indication: PROPHYLAXIS
     Dosage: 200 MG X 1 X 12 HOURS
     Route: 048
     Dates: start: 20210501
  19. ACYCLOVIR (ZOVIRAX) [Concomitant]
     Indication: PROPHYLAXIS
     Dosage: 200 MG X 1 X 12 HOURS
     Route: 042
     Dates: start: 20210501, end: 20210518
  20. CETIRIZINE (ZYRTEX) [Concomitant]
     Indication: ADVERSE EVENT
     Dosage: 10 MG X 1 X 1 DAYS
     Route: 048
     Dates: start: 20210506, end: 20210511
  21. OXYBUTYNIN (DITROPAN) [Concomitant]
     Indication: POLLAKIURIA
     Dosage: 5 MG X 2 X 1 DAYS
     Route: 048
     Dates: start: 20210308, end: 20210419
  22. VALACYCLOVIR (VALTREX) [Concomitant]
     Indication: PROPHYLAXIS
     Dosage: 500 MG X 2 X 1 DAYS
     Route: 048
     Dates: start: 20210303, end: 20210426

REACTIONS (1)
  - Sepsis [Recovered/Resolved]

NARRATIVE: CASE EVENT DATE: 20210507
